FAERS Safety Report 23583053 (Version 1)
Quarter: 2024Q1

REPORT INFORMATION
  Report Type: Spontaneous
  Country: US (occurrence: US)
  Receive Date: 20240301
  Receipt Date: 20240301
  Transmission Date: 20240409
  Serious: No
  Sender: FDA-Public Use
  Company Number: US-STRIDES ARCOLAB LIMITED-2024SP001606

PATIENT
  Age: 31 Year
  Sex: Female

DRUGS (21)
  1. TORSEMIDE [Suspect]
     Active Substance: TORSEMIDE
     Indication: Product used for unknown indication
     Dosage: UNK
     Route: 065
  2. LIDOCAINE [Suspect]
     Active Substance: LIDOCAINE
     Indication: Epidural test dose
     Dosage: 3 ML (TEST DOSE (1.5%))
     Route: 008
  3. LIDOCAINE [Suspect]
     Active Substance: LIDOCAINE
     Indication: Anaesthesia procedure
     Dosage: UNK, (IN INCREAMENT OF 3-5ML UNTIL AN ANESTHETIC LEVEL OF T4 WAS ACHIVED (2%))
     Route: 008
  4. POTASSIUM CHLORIDE [Suspect]
     Active Substance: POTASSIUM CHLORIDE
     Indication: Supplementation therapy
     Dosage: UNK
     Route: 065
  5. METOPROLOL [Suspect]
     Active Substance: METOPROLOL
     Indication: Product used for unknown indication
     Dosage: UNK
     Route: 065
  6. DIGOXIN [Suspect]
     Active Substance: DIGOXIN
     Indication: Product used for unknown indication
     Dosage: UNK
     Route: 065
  7. BUMETANIDE [Suspect]
     Active Substance: BUMETANIDE
     Indication: Diuretic therapy
     Dosage: UNK, (INTRAVENOUS INFUSION)
     Route: 042
  8. BUMETANIDE [Suspect]
     Active Substance: BUMETANIDE
     Indication: Cardiac failure
     Dosage: 0.25 MILLIGRAM / HOUR (IV INFUSION)
     Route: 042
  9. METOLAZONE [Suspect]
     Active Substance: METOLAZONE
     Indication: Diuretic therapy
     Dosage: UNK
     Route: 042
  10. METOLAZONE [Suspect]
     Active Substance: METOLAZONE
     Indication: Cardiac failure
  11. BETAMETHASONE [Suspect]
     Active Substance: BETAMETHASONE\BETAMETHASONE DIPROPIONATE
     Indication: Maternal therapy to enhance foetal lung maturity
     Dosage: UNK
     Route: 065
  12. MILRINONE [Suspect]
     Active Substance: MILRINONE
     Indication: Diuretic therapy
     Dosage: 0.3 MICROGRAM/KILOGRAM/MIN (INTRAVENOUS INFUSION)
     Route: 042
  13. MILRINONE [Suspect]
     Active Substance: MILRINONE
     Indication: Cardiac failure
  14. BUPIVACAINE [Suspect]
     Active Substance: BUPIVACAINE
     Indication: Anaesthesia procedure
     Dosage: 0.5 MILLILITER
     Route: 037
  15. MORPHINE [Suspect]
     Active Substance: MORPHINE
     Indication: Analgesic therapy
     Dosage: 150 MICROGRAM
     Route: 037
  16. FENTANYL [Suspect]
     Active Substance: FENTANYL\FENTANYL CITRATE
     Indication: Analgesic therapy
     Dosage: 15 MICROGRAM
     Route: 037
  17. NOREPINEPHRINE [Suspect]
     Active Substance: NOREPINEPHRINE\NOREPINEPHRINE BITARTRATE
     Indication: Haemodynamic instability
     Dosage: UNK
     Route: 065
  18. MAGNESIUM [Suspect]
     Active Substance: MAGNESIUM
     Indication: Supplementation therapy
     Dosage: UNK
     Route: 042
  19. EPINEPHRINE [Suspect]
     Active Substance: EPINEPHRINE
     Indication: Haemodynamic instability
     Dosage: 15 MICROGRAM (TEST DOSE)
     Route: 008
  20. EPINEPHRINE [Suspect]
     Active Substance: EPINEPHRINE
     Indication: Epidural test dose
     Dosage: UNK, (5?G/ML IN INCREAMENT OF 3-5ML UNTIL AN ANESTHETIC LEVEL OF T4 WAS ACHIVED)
     Route: 008
  21. EPINEPHRINE [Suspect]
     Active Substance: EPINEPHRINE
     Dosage: 1 MICROGRAM/MIN
     Route: 042

REACTIONS (1)
  - Maternal exposure during pregnancy [Unknown]
